FAERS Safety Report 6409462-1 (Version None)
Quarter: 2009Q4

REPORT INFORMATION
  Report Type: 
  Country: None (occurrence: None)
  Receive Date: 20091019
  Receipt Date: 20091005
  Transmission Date: 20100525
  Serious: Yes (Hospitalization)
  Sender: FDA-Public Use
  Company Number: 232478K08USA

PATIENT
  Age: 42 Year
  Sex: Female
  Weight: 108 kg

DRUGS (4)
  1. REBIF [Suspect]
     Indication: MULTIPLE SCLEROSIS
     Dosage: 44 MCG, 3 IN 1 WEEKS, SUBCUTANEOUS; 22 MCG, 3 IN 1 WEEKS, SUBCUTANEOUS
     Route: 057
     Dates: start: 20080809, end: 20081201
  2. REBIF [Suspect]
     Indication: MULTIPLE SCLEROSIS
     Dosage: 44 MCG, 3 IN 1 WEEKS, SUBCUTANEOUS; 22 MCG, 3 IN 1 WEEKS, SUBCUTANEOUS
     Route: 057
     Dates: start: 20090724
  3. YAZ [Suspect]
     Indication: CONTRACEPTION
     Dosage: ORAL
     Route: 048
     Dates: start: 20080601, end: 20081201
  4. FLEXERIL [Suspect]
     Indication: MUSCLE SPASMS
     Dosage: 10 MG, AS REQUIRED

REACTIONS (8)
  - ANTEPARTUM HAEMORRHAGE [None]
  - CONVULSION [None]
  - DRUG EXPOSURE DURING PREGNANCY [None]
  - INDUCED LABOUR [None]
  - MUSCLE SPASMS [None]
  - PREGNANCY ON ORAL CONTRACEPTIVE [None]
  - PULMONARY EMBOLISM [None]
  - RETAINED PLACENTA OR MEMBRANES [None]
